FAERS Safety Report 9208708 (Version 1)
Quarter: 2013Q1

REPORT INFORMATION
  Report Type: Spontaneous
  Country: US (occurrence: None)
  Receive Date: 20130129
  Receipt Date: 20130129
  Transmission Date: 20140127
  Serious: No
  Sender: FDA-Public Use
  Company Number: TPA2013A00975

PATIENT
  Sex: Female

DRUGS (1)
  1. ACTOS (PIOGLITAZONE HYDROCHLORIDE) [Suspect]
     Indication: DIABETES MELLITUS
     Route: 048

REACTIONS (1)
  - Pneumonia [None]
